FAERS Safety Report 24795999 (Version 1)
Quarter: 2025Q1

REPORT INFORMATION
  Report Type: Spontaneous
  Country: US (occurrence: US)
  Receive Date: 20250101
  Receipt Date: 20250101
  Transmission Date: 20250409
  Serious: Yes (Other)
  Sender: SANOFI AVENTIS
  Company Number: US-SA-2024SA385391

PATIENT
  Age: 88 Year
  Sex: Female

DRUGS (3)
  1. DUPIXENT [Suspect]
     Active Substance: DUPILUMAB
     Indication: Eczema
     Dates: start: 202412, end: 202412
  2. DUPIXENT [Suspect]
     Active Substance: DUPILUMAB
     Dosage: 300 MG, QOW
     Dates: start: 202412
  3. LEFLUNOMIDE [Concomitant]
     Active Substance: LEFLUNOMIDE

REACTIONS (5)
  - Rheumatoid arthritis [Unknown]
  - Fall [Unknown]
  - Musculoskeletal stiffness [Unknown]
  - Motor dysfunction [Unknown]
  - Paraesthesia [Unknown]

NARRATIVE: CASE EVENT DATE: 20241201
